FAERS Safety Report 20193427 (Version 1)
Quarter: 2021Q4

REPORT INFORMATION
  Report Type: Spontaneous
  Country: US (occurrence: None)
  Receive Date: 20211215
  Receipt Date: 20211215
  Transmission Date: 20220303
  Serious: Yes (Death)
  Sender: FDA-Public Use
  Company Number: None

PATIENT
  Sex: Male
  Weight: 69.67 kg

DRUGS (23)
  1. NINLARO [Suspect]
     Active Substance: IXAZOMIB CITRATE
     Indication: Plasma cell myeloma
     Dosage: OTHER FREQUENCY : DAYS 1,8,15;?
     Route: 048
  2. ASPIRIN [Concomitant]
     Active Substance: ASPIRIN
  3. DEXAMETHASONE [Concomitant]
     Active Substance: DEXAMETHASONE
  4. FERROUS SULFATE [Concomitant]
     Active Substance: FERROUS SULFATE
  5. FISH OIL [Concomitant]
  6. GABAPENTIN [Concomitant]
     Active Substance: GABAPENTIN
  7. METOPROLOL TARTRATE [Concomitant]
  8. TYLENOL 8HR [Concomitant]
     Active Substance: ACETAMINOPHEN
  9. ZOFRAN [Concomitant]
     Active Substance: ONDANSETRON HYDROCHLORIDE
  10. ACYCLOVIR [Concomitant]
     Active Substance: ACYCLOVIR
  11. LIDOCAINE\PRILOCAINE [Concomitant]
     Active Substance: LIDOCAINE\PRILOCAINE
  12. HEPARIN [Concomitant]
     Active Substance: HEPARIN SODIUM
  13. OXYCODONE [Concomitant]
     Active Substance: OXYCODONE
  14. PROCHLORPERAZINE [Concomitant]
     Active Substance: PROCHLORPERAZINE
  15. ROXICODONE [Concomitant]
     Active Substance: OXYCODONE HYDROCHLORIDE
  16. POTASSIUM CHLORIDE [Concomitant]
     Active Substance: POTASSIUM CHLORIDE
  17. PALONESTRON [Concomitant]
  18. VITAMIN C [Concomitant]
     Active Substance: ASCORBIC ACID
  19. VITAMIN C [Concomitant]
     Active Substance: ASCORBIC ACID
  20. COENZYME Q10 [Concomitant]
     Active Substance: DIETARY SUPPLEMENT\UBIDECARENONE
  21. ASPIRIN [Concomitant]
     Active Substance: ASPIRIN
  22. VITAMIN E [Concomitant]
     Active Substance: .ALPHA.-TOCOPHEROL
  23. CALCITRATE PLUS D [Concomitant]

REACTIONS (1)
  - Death [None]
